FAERS Safety Report 21294337 (Version 1)
Quarter: 2022Q3

REPORT INFORMATION
  Report Type: Report from Study
  Country: US (occurrence: US)
  Receive Date: 20220905
  Receipt Date: 20220905
  Transmission Date: 20221027
  Serious: Yes (Hospitalization)
  Sender: FDA-Public Use
  Company Number: US-JAZZ-2022-US-016617

PATIENT
  Sex: Male

DRUGS (15)
  1. XYREM [Suspect]
     Active Substance: SODIUM OXYBATE
     Indication: Narcolepsy
     Dosage: UNK
     Route: 048
     Dates: start: 201203
  2. XYREM [Suspect]
     Active Substance: SODIUM OXYBATE
     Indication: Cataplexy
  3. XYREM [Suspect]
     Active Substance: SODIUM OXYBATE
     Indication: Somnolence
  4. TYLENOL [Concomitant]
     Active Substance: ACETAMINOPHEN
     Dosage: 0000
     Dates: start: 20150429
  5. CARVEDILOL [Concomitant]
     Active Substance: CARVEDILOL
     Dosage: 0000
     Dates: start: 20151214
  6. LITHIUM CARBONATE [Concomitant]
     Active Substance: LITHIUM CARBONATE
     Dosage: 150 MG CAP
     Dates: start: 20160404
  7. LITHIUM CARBONATE [Concomitant]
     Active Substance: LITHIUM CARBONATE
     Dosage: 300 MG CAP
     Dates: start: 20170202
  8. XARELTO [Concomitant]
     Active Substance: RIVAROXABAN
     Dosage: 0000
     Dates: start: 20151021
  9. LASIX [Concomitant]
     Active Substance: FUROSEMIDE
     Dosage: 0000
     Dates: start: 20170202
  10. GABAPENTIN [Concomitant]
     Active Substance: GABAPENTIN
     Dosage: 0000
     Dates: start: 20170113
  11. METFORMIN HYDROCHLORIDE [Concomitant]
     Active Substance: METFORMIN HYDROCHLORIDE
     Dosage: 0000
     Dates: start: 20160830
  12. FIBERCON [Concomitant]
     Active Substance: CALCIUM POLYCARBOPHIL
     Dosage: CAPLET
     Dates: start: 20171003
  13. FLUTICASONE PROPIONATE [Concomitant]
     Active Substance: FLUTICASONE PROPIONATE
     Dosage: 0020
     Dates: start: 20170517
  14. MIRALAX [Concomitant]
     Active Substance: POLYETHYLENE GLYCOL 3350
     Dosage: 0000
     Dates: start: 20171003
  15. TRIAMCINOLONE [Concomitant]
     Active Substance: TRIAMCINOLONE
     Dosage: 0000
     Dates: start: 20170705

REACTIONS (5)
  - Hospitalisation [Unknown]
  - Withdrawal syndrome [Unknown]
  - Fall [Unknown]
  - Injury [Unknown]
  - Product administration interrupted [Unknown]
